FAERS Safety Report 13490535 (Version 1)
Quarter: 2017Q2

REPORT INFORMATION
  Report Type: Spontaneous
  Country: US (occurrence: US)
  Receive Date: 20170427
  Receipt Date: 20170427
  Transmission Date: 20170830
  Serious: No
  Sender: FDA-Public Use
  Company Number: US-ELI_LILLY_AND_COMPANY-US201704008935

PATIENT
  Age: 72 Year
  Sex: Female

DRUGS (1)
  1. HUMALOG KWIKPEN [Suspect]
     Active Substance: INSULIN LISPRO
     Indication: TYPE 1 DIABETES MELLITUS
     Dosage: 20 U, QD
     Route: 058
     Dates: start: 20170420

REACTIONS (3)
  - Drug ineffective [Unknown]
  - Blood glucose increased [Recovering/Resolving]
  - Accidental underdose [Unknown]

NARRATIVE: CASE EVENT DATE: 20170420
